FAERS Safety Report 10448331 (Version 3)
Quarter: 2016Q2

REPORT INFORMATION
  Report Type: Report from Study
  Country: DE (occurrence: CO)
  Receive Date: 20140911
  Receipt Date: 20160422
  Transmission Date: 20160815
  Serious: Yes (Death, Other)
  Sender: FDA-Public Use
  Company Number: DE-ACTELION-A-US2014-105025

PATIENT
  Age: 66 Year
  Sex: Female

DRUGS (4)
  1. VENTAVIS [Suspect]
     Active Substance: ILOPROST
     Dosage: 10 MCG/ML, Q3HR
     Route: 055
     Dates: end: 20150102
  2. VENTAVIS [Suspect]
     Active Substance: ILOPROST
     Indication: PULMONARY HYPERTENSION
     Dosage: 10 MCG/ML, Q4HR
     Route: 055
     Dates: start: 20130425, end: 201405
  3. ETANERCEPT [Concomitant]
     Active Substance: ETANERCEPT
  4. LOSARTAN. [Concomitant]
     Active Substance: LOSARTAN
     Dosage: UNK
     Dates: start: 2011

REACTIONS (6)
  - Eye irritation [Recovered/Resolved]
  - Dacryostenosis acquired [Not Recovered/Not Resolved]
  - Neoplasm skin [Recovered/Resolved]
  - Disease progression [Fatal]
  - Pulmonary hypertension [Fatal]
  - Cough [Recovered/Resolved]

NARRATIVE: CASE EVENT DATE: 20140514
